FAERS Safety Report 10395886 (Version 1)
Quarter: 2014Q3

REPORT INFORMATION
  Report Type: Spontaneous
  Country: US (occurrence: None)
  Receive Date: 20140819
  Receipt Date: 20140819
  Transmission Date: 20150326
  Serious: Yes (Hospitalization)
  Sender: FDA-Public Use
  Company Number: None

PATIENT
  Age: 82 Year
  Sex: Male
  Weight: 49.5 kg

DRUGS (1)
  1. ZIPRASIDONE [Suspect]
     Active Substance: ZIPRASIDONE
     Indication: SCHIZOPHRENIA
     Dosage: AM
     Route: 048
     Dates: end: 20140803

REACTIONS (2)
  - Bradycardia [None]
  - Palpitations [None]

NARRATIVE: CASE EVENT DATE: 20140803
